FAERS Safety Report 20072791 (Version 1)
Quarter: 2021Q4

REPORT INFORMATION
  Report Type: Report from Study
  Country: US (occurrence: None)
  Receive Date: 20211116
  Receipt Date: 20211116
  Transmission Date: 20220303
  Serious: Yes (Hospitalization)
  Sender: FDA-Public Use
  Company Number: US-ROCHE-1633052

PATIENT
  Age: 70 Year
  Sex: Female
  Weight: 92.26 kg

DRUGS (29)
  1. POLATUZUMAB VEDOTIN [Suspect]
     Active Substance: POLATUZUMAB VEDOTIN
     Indication: Follicle centre lymphoma, follicular grade I, II, III
     Dosage: DATE OF MOST RECENT DOSE: 08/SEP/2015, AT 14:43.?DOSE: 1.8 MG/KG
     Route: 042
     Dates: start: 20150820
  2. OBINUTUZUMAB [Suspect]
     Active Substance: OBINUTUZUMAB
     Indication: Follicle centre lymphoma, follicular grade I, II, III
     Dosage: MOST RECENT DOSE PRIOR TO EVENT ON 08/SEP/2015, AT 11:30.?FREQUENCY: OTHER
     Route: 042
     Dates: start: 20150819
  3. BENDAMUSTINE [Suspect]
     Active Substance: BENDAMUSTINE
     Indication: Follicle centre lymphoma, follicular grade I, II, III
     Dosage: DATE OF MOST RECENT DOSE: 09/SEP/2015 AT 09: 30 HOURS,?DOSE: 90 MG/M2
     Route: 042
     Dates: start: 20150820
  4. DIFLUCAN [Concomitant]
     Active Substance: FLUCONAZOLE
     Indication: Prophylactic chemotherapy
     Route: 048
     Dates: start: 20150814
  5. FLONASE [Concomitant]
     Active Substance: FLUTICASONE PROPIONATE
     Indication: Sinusitis
     Dosage: 2 SPRAYS IN BOTH NARES
     Route: 045
     Dates: start: 201308
  6. GABAPENTIN [Concomitant]
     Active Substance: GABAPENTIN
     Indication: Neuropathy peripheral
     Dates: start: 2013
  7. LOVENOX [Concomitant]
     Active Substance: ENOXAPARIN SODIUM
     Indication: Pulmonary thrombosis
     Dates: start: 20150730, end: 20150901
  8. LOVENOX [Concomitant]
     Active Substance: ENOXAPARIN SODIUM
     Indication: Hypoxia
     Dates: start: 20150909, end: 20150909
  9. MIRALAX [Concomitant]
     Active Substance: POLYETHYLENE GLYCOL 3350
     Indication: Constipation
     Dates: start: 20150730
  10. PANTOPRAZOLE [Concomitant]
     Active Substance: PANTOPRAZOLE
     Indication: Gastrooesophageal reflux disease
     Route: 048
     Dates: start: 20150730
  11. SYNTHROID [Concomitant]
     Active Substance: LEVOTHYROXINE SODIUM
     Indication: Hypothyroidism
     Dates: start: 2010
  12. VALTREX [Concomitant]
     Active Substance: VALACYCLOVIR HYDROCHLORIDE
     Indication: Prophylactic chemotherapy
     Dates: start: 20150814, end: 20151020
  13. XANAX [Concomitant]
     Active Substance: ALPRAZOLAM
     Indication: Anxiety
     Dates: start: 2009
  14. ZOCOR [Concomitant]
     Active Substance: SIMVASTATIN
     Indication: Hyperlipidaemia
     Dates: start: 201506
  15. ZOFRAN [Concomitant]
     Active Substance: ONDANSETRON HYDROCHLORIDE
     Indication: Nausea
     Dosage: INDICATION: CHEMOTHERAPY NAUSEA
     Dates: start: 20150814
  16. OXYCODONE [Concomitant]
     Active Substance: OXYCODONE
     Indication: Osteoarthritis
     Dates: start: 2009
  17. OXYCODONE [Concomitant]
     Active Substance: OXYCODONE
     Indication: Bone pain
  18. FLAGYL [Concomitant]
     Active Substance: METRONIDAZOLE\METRONIDAZOLE HYDROCHLORIDE
     Indication: Diarrhoea
     Dates: start: 20150828, end: 20150911
  19. FLAGYL [Concomitant]
     Active Substance: METRONIDAZOLE\METRONIDAZOLE HYDROCHLORIDE
     Indication: Colitis
     Dates: start: 20151020
  20. SALINE [Concomitant]
     Active Substance: SODIUM CHLORIDE
     Indication: Dehydration
     Dates: start: 20150909, end: 20150909
  21. SODIUM CHLORIDE [Concomitant]
     Active Substance: SODIUM CHLORIDE
     Indication: Blood creatinine increased
     Dates: start: 20150908, end: 20150908
  22. HEPARIN [Concomitant]
     Active Substance: HEPARIN SODIUM
     Indication: Hypoxia
     Dates: start: 20150909, end: 20150909
  23. AZTREONAM [Concomitant]
     Active Substance: AZTREONAM
     Indication: Pneumonia
     Dates: start: 20150910, end: 20150910
  24. AZITHROMYCIN [Concomitant]
     Active Substance: AZITHROMYCIN
     Indication: Pneumonia
     Dates: start: 20150910, end: 20150910
  25. PROTONIX [Concomitant]
     Active Substance: PANTOPRAZOLE SODIUM
     Indication: Gastrooesophageal reflux disease
     Dates: start: 20150910
  26. ATARAX [Concomitant]
     Active Substance: HYDROXYZINE HYDROCHLORIDE
     Indication: Rash
     Dates: start: 20150929, end: 20151020
  27. IMODIUM [Concomitant]
     Active Substance: LOPERAMIDE HYDROCHLORIDE
     Indication: Diarrhoea
     Route: 048
     Dates: start: 20150828
  28. IMODIUM [Concomitant]
     Active Substance: LOPERAMIDE HYDROCHLORIDE
     Indication: Colitis
     Dates: start: 20150901
  29. ASPIRIN [Concomitant]
     Active Substance: ASPIRIN
     Indication: Prophylaxis
     Dates: start: 20150901

REACTIONS (2)
  - Nausea [Recovered/Resolved]
  - Dyspnoea [Recovered/Resolved]

NARRATIVE: CASE EVENT DATE: 20150909
